FAERS Safety Report 21147565 (Version 1)
Quarter: 2022Q3

REPORT INFORMATION
  Report Type: Spontaneous
  Country: US (occurrence: None)
  Receive Date: 20220728
  Receipt Date: 20220728
  Transmission Date: 20221027
  Serious: Yes (Hospitalization)
  Sender: FDA-Public Use
  Company Number: None

PATIENT
  Sex: 0

DRUGS (1)
  1. ORENCIA [Suspect]
     Active Substance: ABATACEPT

REACTIONS (6)
  - Infection [None]
  - White blood cell count decreased [None]
  - Dizziness [None]
  - Loss of consciousness [None]
  - Head injury [None]
  - Anaemia [None]
